FAERS Safety Report 16565470 (Version 1)
Quarter: 2019Q3

REPORT INFORMATION
  Report Type: Spontaneous
  Country: US (occurrence: US)
  Receive Date: 20190711
  Receipt Date: 20190711
  Transmission Date: 20191004
  Serious: No
  Sender: FDA-Public Use
  Company Number: None

PATIENT
  Age: 36 Year
  Sex: Female
  Weight: 63.96 kg

DRUGS (1)
  1. NEXPLANON [Suspect]
     Active Substance: ETONOGESTREL
     Indication: HYPERSENSITIVITY
     Dates: start: 20190627, end: 20190701

REACTIONS (3)
  - Rash pruritic [None]
  - Drug hypersensitivity [None]
  - Implant site rash [None]

NARRATIVE: CASE EVENT DATE: 20190701
